FAERS Safety Report 8377254-2 (Version None)
Quarter: 2012Q1

REPORT INFORMATION
  Report Type: 
  Country: None (occurrence: None)
  Receive Date: 20120323
  Receipt Date: 20110324
  Transmission Date: 20120608
  Serious: Yes (Hospitalization)
  Sender: FDA-Public Use
  Company Number: 163-21880-11033026

PATIENT
  Age: 52 Year
  Sex: Male

DRUGS (3)
  1. REVLIMID [Suspect]
     Indication: MULTIPLE MYELOMA
     Dosage: 25 MG, 1 IN 1 D, PO 10-25MG, DAILY, PO 10 MG, DAILY FOR 28 DAYS, PO
     Route: 048
     Dates: start: 20091201
  2. REVLIMID [Suspect]
     Indication: MULTIPLE MYELOMA
     Dosage: 25 MG, 1 IN 1 D, PO 10-25MG, DAILY, PO 10 MG, DAILY FOR 28 DAYS, PO
     Route: 048
     Dates: start: 20100901
  3. REVLIMID [Suspect]
     Indication: MULTIPLE MYELOMA
     Dosage: 25 MG, 1 IN 1 D, PO 10-25MG, DAILY, PO 10 MG, DAILY FOR 28 DAYS, PO
     Route: 048
     Dates: start: 20100601

REACTIONS (1)
  - PNEUMONIA [None]
